FAERS Safety Report 9176765 (Version 1)
Quarter: 2013Q1

REPORT INFORMATION
  Report Type: Spontaneous
  Country: US (occurrence: None)
  Receive Date: 20130320
  Receipt Date: 20130320
  Transmission Date: 20140127
  Serious: Yes (Death, Life-Threatening, Hospitalization)
  Sender: FDA-Public Use
  Company Number: None

PATIENT
  Age: 72 Year
  Sex: Female
  Weight: 95 kg

DRUGS (1)
  1. ENOXAPARIN 30 MG [Suspect]
     Route: 058
     Dates: start: 20130305, end: 20130314

REACTIONS (5)
  - Aortic embolus [None]
  - Femoral artery occlusion [None]
  - Peripheral artery thrombosis [None]
  - Pulmonary embolism [None]
  - Respiratory arrest [None]
